FAERS Safety Report 17327333 (Version 2)
Quarter: 2020Q3

REPORT INFORMATION
  Report Type: Report from Study
  Country: IN (occurrence: IN)
  Receive Date: 20200127
  Receipt Date: 20200211
  Transmission Date: 20201105
  Serious: Yes (Other)
  Sender: FDA-Public Use
  Company Number: NVSC2019IN073808

PATIENT
  Age: 38 Year
  Sex: Male
  Weight: 90 kg

DRUGS (3)
  1. GALVUS [Suspect]
     Active Substance: VILDAGLIPTIN
     Indication: DIABETES MELLITUS
     Dosage: 1 DF, QD (1?0?0, POST MEAL), SINCE 5 MONTHS
     Route: 048
  2. GALVUS MET [Suspect]
     Active Substance: METFORMIN HYDROCHLORIDE\VILDAGLIPTIN
     Indication: PRODUCT USED FOR UNKNOWN INDICATION
     Dosage: (1 IN THE MORNING)
     Route: 048
  3. METFORMIN HYDROCHLORIDE. [Concomitant]
     Active Substance: METFORMIN HYDROCHLORIDE
     Indication: PRODUCT USED FOR UNKNOWN INDICATION
     Dosage: (ONE IN THE EVENING)
     Route: 048

REACTIONS (3)
  - Hypoglycaemia [Unknown]
  - Hyperglycaemia [Unknown]
  - Anxiety [Unknown]

NARRATIVE: CASE EVENT DATE: 20191209
